FAERS Safety Report 4773179-X (Version None)
Quarter: 2005Q3

REPORT INFORMATION
  Report Type: 
  Country: None (occurrence: None)
  Receive Date: 20050919
  Receipt Date: 20050309
  Transmission Date: 20060218
  Serious: Yes (Hospitalization)
  Sender: FDA-Public Use
  Company Number: JP-MERCK-0503USA01863

PATIENT
  Age: 60 Year
  Sex: Female

DRUGS (5)
  1. SINGULAIR [Suspect]
     Indication: BRONCHOSTENOSIS
     Route: 048
     Dates: start: 20050101, end: 20050201
  2. SINGULAIR [Suspect]
     Indication: BRONCHIECTASIS
     Route: 048
     Dates: start: 20050101, end: 20050201
  3. LIPOVAS [Concomitant]
     Indication: LIPIDS DECREASED
     Route: 048
     Dates: start: 20050101, end: 20050201
  4. UNIPHYL [Suspect]
     Indication: BRONCHOSTENOSIS
     Route: 048
     Dates: start: 20050101, end: 20050201
  5. UNIPHYL [Suspect]
     Indication: BRONCHIECTASIS
     Route: 048
     Dates: start: 20050101, end: 20050201

REACTIONS (3)
  - ALANINE AMINOTRANSFERASE INCREASED [None]
  - ASPARTATE AMINOTRANSFERASE INCREASED [None]
  - BLOOD BILIRUBIN INCREASED [None]
